FAERS Safety Report 11971035 (Version 2)
Quarter: 2017Q1

REPORT INFORMATION
  Report Type: Spontaneous
  Country: US (occurrence: US)
  Receive Date: 20160128
  Receipt Date: 20170118
  Transmission Date: 20170428
  Serious: Yes (Death, Other)
  Sender: FDA-Public Use
  Company Number: US-ELI_LILLY_AND_COMPANY-US201601009698

PATIENT
  Age: 64 Year
  Sex: Male

DRUGS (8)
  1. TRAZODONE [Concomitant]
     Active Substance: TRAZODONE HYDROCHLORIDE
     Dosage: 100 MG, PRN
     Route: 048
  2. IRBESARTAN. [Concomitant]
     Active Substance: IRBESARTAN
     Dosage: 150 MG, UNKNOWN
     Route: 065
  3. CYMBALTA [Suspect]
     Active Substance: DULOXETINE HYDROCHLORIDE
     Indication: PAIN
     Dosage: 60 MG, EACH MORNING
     Route: 048
  4. SEROQUEL [Concomitant]
     Active Substance: QUETIAPINE FUMARATE
     Dosage: 100 MG, EACH EVENING
     Route: 048
  5. CYMBALTA [Suspect]
     Active Substance: DULOXETINE HYDROCHLORIDE
     Indication: DEPRESSION
     Dosage: 30 MG, EACH MORNING
     Route: 048
     Dates: end: 20140121
  6. MELOXICAM. [Concomitant]
     Active Substance: MELOXICAM
     Dosage: 15 MG, UNKNOWN
     Route: 065
  7. AMLODIPINE [Concomitant]
     Active Substance: AMLODIPINE BESYLATE
     Dosage: 10 MG, UNKNOWN
     Route: 065
  8. BUSPIRONE [Concomitant]
     Active Substance: BUSPIRONE HYDROCHLORIDE
     Dosage: 10 MG, BID
     Route: 048

REACTIONS (20)
  - Nightmare [Unknown]
  - Headache [Unknown]
  - Irritability [Unknown]
  - Dizziness [Unknown]
  - Completed suicide [Fatal]
  - Sleep disorder [Unknown]
  - Insomnia [Unknown]
  - Memory impairment [Unknown]
  - Vomiting [Unknown]
  - Fatigue [Unknown]
  - Disturbance in attention [Unknown]
  - Withdrawal syndrome [Unknown]
  - Paraesthesia [Unknown]
  - Affect lability [Unknown]
  - Confusional state [Unknown]
  - Hallucination [Unknown]
  - Sensory disturbance [Unknown]
  - Suicidal ideation [Unknown]
  - Migraine [Unknown]
  - Nausea [Unknown]

NARRATIVE: CASE EVENT DATE: 20140126
